FAERS Safety Report 7077868-6 (Version None)
Quarter: 2010Q4

REPORT INFORMATION
  Report Type: 
  Country: None (occurrence: None)
  Receive Date: 20101101
  Receipt Date: 20101025
  Transmission Date: 20110411
  Serious: Yes (Other)
  Sender: FDA-Public Use
  Company Number: US-US-EMD SERONO, INC.-232715K08USA

PATIENT
  Sex: Female
  Weight: 73 kg

DRUGS (2)
  1. REBIF [Suspect]
     Indication: MULTIPLE SCLEROSIS
     Route: 058
     Dates: start: 20070326, end: 20090801
  2. MULTI-VITAMIN [Concomitant]

REACTIONS (5)
  - HYPERTENSION [None]
  - ROAD TRAFFIC ACCIDENT [None]
  - SPONDYLOLISTHESIS [None]
  - SUPRAVENTRICULAR TACHYCARDIA [None]
  - VENTRICULAR EXTRASYSTOLES [None]
